FAERS Safety Report 21973158 (Version 2)
Quarter: 2023Q1

REPORT INFORMATION
  Report Type: Spontaneous
  Country: US (occurrence: US)
  Receive Date: 20230209
  Receipt Date: 20230227
  Transmission Date: 20230417
  Serious: Yes (Other)
  Sender: FDA-Public Use
  Company Number: US-ABBVIE-4301095

PATIENT
  Age: 59 Year
  Sex: Male
  Weight: 109 kg

DRUGS (9)
  1. IMBRUVICA [Suspect]
     Active Substance: IBRUTINIB
     Indication: B-cell small lymphocytic lymphoma
     Dosage: 280 MILLIGRAM
     Route: 048
     Dates: start: 201904, end: 20220131
  2. IMBRUVICA [Suspect]
     Active Substance: IBRUTINIB
     Indication: B-cell small lymphocytic lymphoma
     Dosage: 140 MILLIGRAM
     Route: 048
     Dates: start: 20230210
  3. ELIQUIS [Concomitant]
     Active Substance: APIXABAN
     Indication: Anticoagulant therapy
  4. VITAMIN D [Concomitant]
     Active Substance: VITAMIN D NOS
     Indication: Product used for unknown indication
  5. INSULIN NOS [Concomitant]
     Active Substance: INSULIN NOS
     Indication: Diabetes mellitus
  6. VALACYCLOVIR HYDROCHLORIDE [Concomitant]
     Active Substance: VALACYCLOVIR HYDROCHLORIDE
     Indication: Prophylaxis
  7. METFORMIN [Concomitant]
     Active Substance: METFORMIN HYDROCHLORIDE
     Indication: Diabetes mellitus
  8. BACTRIM [Concomitant]
     Active Substance: SULFAMETHOXAZOLE\TRIMETHOPRIM
     Indication: Prophylaxis
  9. INVOKANA [Concomitant]
     Active Substance: CANAGLIFLOZIN
     Indication: Diabetes mellitus

REACTIONS (9)
  - Hip fracture [Recovering/Resolving]
  - Epistaxis [Recovered/Resolved]
  - Night sweats [Recovered/Resolved]
  - Pyrexia [Recovered/Resolved]
  - Fall [Recovering/Resolving]
  - Post procedural contusion [Recovered/Resolved]
  - Nausea [Recovered/Resolved]
  - Heart rate increased [Recovered/Resolved]
  - Haemorrhage [Unknown]

NARRATIVE: CASE EVENT DATE: 20221001
